FAERS Safety Report 21270511 (Version 3)
Quarter: 2025Q1

REPORT INFORMATION
  Report Type: Spontaneous
  Country: DE (occurrence: DE)
  Receive Date: 20220830
  Receipt Date: 20250206
  Transmission Date: 20250408
  Serious: Yes (Hospitalization)
  Sender: PFIZER
  Company Number: DE-ROCHE-3105475

PATIENT
  Age: 55 Year
  Sex: Female
  Weight: 106 kg

DRUGS (104)
  1. RITUXIMAB [Suspect]
     Active Substance: RITUXIMAB
     Indication: Diffuse large B-cell lymphoma
     Dosage: 375 MG/M2, EVERY 3 WEEKS
     Route: 042
     Dates: start: 20220406
  2. RITUXIMAB [Suspect]
     Active Substance: RITUXIMAB
     Dates: start: 20220518
  3. DOXORUBICIN [Suspect]
     Active Substance: DOXORUBICIN
     Indication: Diffuse large B-cell lymphoma
     Dosage: 111 MG/M2, EVERY 3 WEEKS
     Route: 042
     Dates: start: 20220407
  4. DOXORUBICIN [Suspect]
     Active Substance: DOXORUBICIN
  5. DOXORUBICIN [Suspect]
     Active Substance: DOXORUBICIN
     Dosage: 111 MG, EVERY 3 WEEKS
     Route: 042
     Dates: start: 20220407
  6. DOXORUBICIN [Suspect]
     Active Substance: DOXORUBICIN
     Dosage: 111 MG, EVERY 3 WEEKS
     Route: 042
     Dates: start: 20220407
  7. POLATUZUMAB VEDOTIN [Suspect]
     Active Substance: POLATUZUMAB VEDOTIN
     Indication: Diffuse large B-cell lymphoma
     Route: 042
     Dates: start: 20220407
  8. PREDNISOLONE [Suspect]
     Active Substance: PREDNISOLONE
     Indication: Diffuse large B-cell lymphoma
     Route: 048
     Dates: start: 20220406
  9. PREDNISOLONE [Suspect]
     Active Substance: PREDNISOLONE
     Route: 042
     Dates: start: 20220802, end: 20220802
  10. PREDNISOLONE [Suspect]
     Active Substance: PREDNISOLONE
     Route: 042
     Dates: start: 20220712
  11. CYCLOPHOSPHAMIDE [Suspect]
     Active Substance: CYCLOPHOSPHAMIDE
     Indication: Diffuse large B-cell lymphoma
     Dosage: 1665 MG/M2, EVERY 3 WEEKS
     Route: 042
     Dates: start: 20220407
  12. CYCLOPHOSPHAMIDE [Suspect]
     Active Substance: CYCLOPHOSPHAMIDE
  13. GLOFITAMAB [Suspect]
     Active Substance: GLOFITAMAB
     Indication: Diffuse large B-cell lymphoma
     Dosage: 2.5 MG, EVERY 3 WEEKS
     Route: 042
     Dates: start: 20220504
  14. GLOFITAMAB [Suspect]
     Active Substance: GLOFITAMAB
  15. GLOFITAMAB [Suspect]
     Active Substance: GLOFITAMAB
     Indication: Diffuse large B-cell lymphoma
     Dosage: 2.5 MG, EVERY 3 WEEKS
     Route: 042
     Dates: start: 20220504
  16. FOLIC ACID [Concomitant]
     Active Substance: FOLIC ACID
     Indication: Folate deficiency
  17. CHOLECALCIFEROL [Concomitant]
     Active Substance: CHOLECALCIFEROL
     Indication: Vitamin D deficiency
  18. RAMIPRIL [Concomitant]
     Active Substance: RAMIPRIL
     Indication: Hypertension
  19. PANTOPRAZOLE [Concomitant]
     Active Substance: PANTOPRAZOLE
     Indication: Prophylaxis
  20. CITALOPRAM [Concomitant]
     Active Substance: CITALOPRAM
     Indication: Depression
  21. ACYCLOVIR [Concomitant]
     Active Substance: ACYCLOVIR
     Indication: Herpes zoster
     Dates: start: 20220321
  22. ACETAMINOPHEN [Concomitant]
     Active Substance: ACETAMINOPHEN
     Indication: Headache
     Route: 048
     Dates: start: 20220504, end: 20220504
  23. ACETAMINOPHEN [Concomitant]
     Active Substance: ACETAMINOPHEN
     Indication: Prophylaxis
     Route: 048
     Dates: start: 20220511, end: 20220511
  24. ACETAMINOPHEN [Concomitant]
     Active Substance: ACETAMINOPHEN
     Route: 048
     Dates: start: 20220427, end: 20220427
  25. ACETAMINOPHEN [Concomitant]
     Active Substance: ACETAMINOPHEN
     Dates: start: 20220518, end: 20220518
  26. ACETAMINOPHEN [Concomitant]
     Active Substance: ACETAMINOPHEN
     Dates: start: 20220621, end: 20220621
  27. ACETAMINOPHEN [Concomitant]
     Active Substance: ACETAMINOPHEN
     Dates: start: 20220719, end: 20220719
  28. ACETAMINOPHEN [Concomitant]
     Active Substance: ACETAMINOPHEN
     Dates: start: 20220629, end: 20220629
  29. ACETAMINOPHEN [Concomitant]
     Active Substance: ACETAMINOPHEN
     Dates: start: 20220802, end: 20220802
  30. ACETAMINOPHEN [Concomitant]
     Active Substance: ACETAMINOPHEN
     Dates: start: 20220712, end: 20220712
  31. ACETAMINOPHEN [Concomitant]
     Active Substance: ACETAMINOPHEN
     Dates: start: 20220530, end: 20220530
  32. ACETAMINOPHEN [Concomitant]
     Active Substance: ACETAMINOPHEN
     Dates: start: 20220809, end: 20220809
  33. CLEMASTINE [Concomitant]
     Active Substance: CLEMASTINE
     Route: 042
     Dates: start: 20220504, end: 20220504
  34. CLEMASTINE [Concomitant]
     Active Substance: CLEMASTINE
     Route: 042
     Dates: start: 20220511, end: 20220511
  35. CLEMASTINE [Concomitant]
     Active Substance: CLEMASTINE
     Route: 042
     Dates: start: 20220427, end: 20220427
  36. CLEMASTINE [Concomitant]
     Active Substance: CLEMASTINE
     Dates: start: 20220802, end: 20220802
  37. CLEMASTINE [Concomitant]
     Active Substance: CLEMASTINE
     Dates: start: 20220530, end: 20220530
  38. CLEMASTINE [Concomitant]
     Active Substance: CLEMASTINE
     Dates: start: 20220629, end: 20220629
  39. CLEMASTINE [Concomitant]
     Active Substance: CLEMASTINE
     Dates: start: 20220621, end: 20220621
  40. CLEMASTINE [Concomitant]
     Active Substance: CLEMASTINE
     Dates: start: 20220518, end: 20220518
  41. CLEMASTINE [Concomitant]
     Active Substance: CLEMASTINE
     Dates: start: 20220719, end: 20220719
  42. CLEMASTINE [Concomitant]
     Active Substance: CLEMASTINE
     Dates: start: 20220712, end: 20220712
  43. CLEMASTINE [Concomitant]
     Active Substance: CLEMASTINE
     Dates: start: 20220809, end: 20220809
  44. LEVOTHYROXINE [Concomitant]
     Active Substance: LEVOTHYROXINE
     Indication: Hypothyroidism
  45. AMLODIPINE [Concomitant]
     Active Substance: AMLODIPINE BESYLATE
     Indication: Hypertension
  46. DEXAMETHASONE [Concomitant]
     Active Substance: DEXAMETHASONE
     Route: 042
     Dates: start: 20220504, end: 20220504
  47. DEXAMETHASONE [Concomitant]
     Active Substance: DEXAMETHASONE
     Dates: start: 20220530, end: 20220530
  48. DEXAMETHASONE [Concomitant]
     Active Substance: DEXAMETHASONE
     Dates: start: 20220719, end: 20220719
  49. DEXAMETHASONE [Concomitant]
     Active Substance: DEXAMETHASONE
     Dates: start: 20220629, end: 20220629
  50. SODIUM CHLORIDE [Concomitant]
     Active Substance: SODIUM CHLORIDE
     Indication: Prophylaxis
     Route: 042
     Dates: start: 20220427, end: 20220427
  51. SODIUM CHLORIDE [Concomitant]
     Active Substance: SODIUM CHLORIDE
     Route: 042
     Dates: start: 20220511, end: 20220511
  52. SODIUM CHLORIDE [Concomitant]
     Active Substance: SODIUM CHLORIDE
     Route: 042
     Dates: start: 20220504, end: 20220504
  53. SODIUM CHLORIDE [Concomitant]
     Active Substance: SODIUM CHLORIDE
     Dates: start: 20220518, end: 20220518
  54. SODIUM CHLORIDE [Concomitant]
     Active Substance: SODIUM CHLORIDE
     Dates: start: 20220712, end: 20220712
  55. SODIUM CHLORIDE [Concomitant]
     Active Substance: SODIUM CHLORIDE
     Dates: start: 20220530, end: 20220530
  56. SODIUM CHLORIDE [Concomitant]
     Active Substance: SODIUM CHLORIDE
     Dates: start: 20220621, end: 20220621
  57. SODIUM CHLORIDE [Concomitant]
     Active Substance: SODIUM CHLORIDE
     Dates: start: 20220629, end: 20220629
  58. SODIUM CHLORIDE [Concomitant]
     Active Substance: SODIUM CHLORIDE
     Dates: start: 20220802, end: 20220802
  59. SODIUM CHLORIDE [Concomitant]
     Active Substance: SODIUM CHLORIDE
  60. SODIUM CHLORIDE [Concomitant]
     Active Substance: SODIUM CHLORIDE
     Dates: start: 20220809, end: 20220809
  61. SODIUM CHLORIDE [Concomitant]
     Active Substance: SODIUM CHLORIDE
     Dates: start: 20220719, end: 20220719
  62. SULFAMETHOXAZOLE\TRIMETHOPRIM [Concomitant]
     Active Substance: SULFAMETHOXAZOLE\TRIMETHOPRIM
     Indication: Infection prophylaxis
     Dates: start: 20220321
  63. MESNA [Concomitant]
     Active Substance: MESNA
     Route: 042
     Dates: start: 20220427, end: 20220427
  64. MESNA [Concomitant]
     Active Substance: MESNA
     Dates: start: 20220621, end: 20220621
  65. MESNA [Concomitant]
     Active Substance: MESNA
     Dates: start: 20220712, end: 20220712
  66. MESNA [Concomitant]
     Active Substance: MESNA
     Dates: start: 20220518, end: 20220518
  67. MESNA [Concomitant]
     Active Substance: MESNA
     Dates: start: 20220802, end: 20220802
  68. CIPROFLOXACIN [Concomitant]
     Active Substance: CIPROFLOXACIN
     Indication: Neutropenia
     Dates: start: 20220720, end: 20220725
  69. CIPROFLOXACIN [Concomitant]
     Active Substance: CIPROFLOXACIN
     Dates: start: 20220414, end: 20220420
  70. AMPHO-MORONAL [Concomitant]
     Active Substance: AMPHOTERICIN B
     Indication: Mucosal inflammation
     Dates: start: 20220511, end: 20220518
  71. NEULASTA [Concomitant]
     Active Substance: PEGFILGRASTIM
     Indication: Prophylaxis
     Dates: start: 20220519, end: 20220519
  72. NEULASTA [Concomitant]
     Active Substance: PEGFILGRASTIM
     Indication: Prophylaxis
     Dates: start: 20220428, end: 20220428
  73. NEULASTA [Concomitant]
     Active Substance: PEGFILGRASTIM
  74. ENOXAPARIN SODIUM [Concomitant]
     Active Substance: ENOXAPARIN SODIUM
     Indication: Medical device site thrombosis
     Dates: start: 20220525, end: 20220526
  75. ENOXAPARIN SODIUM [Concomitant]
     Active Substance: ENOXAPARIN SODIUM
     Indication: Thrombosis prophylaxis
     Dates: start: 20220602, end: 20220620
  76. ENOXAPARIN SODIUM [Concomitant]
     Active Substance: ENOXAPARIN SODIUM
     Indication: Medical device site thrombosis
     Dates: start: 20220427, end: 20220428
  77. VALACYCLOVIR HYDROCHLORIDE [Concomitant]
     Active Substance: VALACYCLOVIR HYDROCHLORIDE
     Indication: Herpes simplex
     Dates: start: 20220609, end: 20220609
  78. VALACYCLOVIR HYDROCHLORIDE [Concomitant]
     Active Substance: VALACYCLOVIR HYDROCHLORIDE
     Indication: Herpes simplex
     Dates: start: 20220608, end: 20220613
  79. CITRIC ACID MONOHYDRATE\POTASSIUM BICARBONATE\POTASSIUM CITRATE [Concomitant]
     Active Substance: CITRIC ACID MONOHYDRATE\POTASSIUM BICARBONATE\POTASSIUM CITRATE
     Dates: start: 20220526, end: 20220527
  80. POTASSIUM [Concomitant]
     Active Substance: POTASSIUM
     Dates: start: 20220719, end: 20220719
  81. SUCRALFATE [Concomitant]
     Active Substance: SUCRALFATE
     Dates: start: 20220725
  82. APREPITANT [Concomitant]
     Active Substance: APREPITANT
     Indication: Nausea
     Dates: start: 20220621, end: 20220623
  83. JONOSTERIL [CALCIUM ACETATE;MAGNESIUM ACETATE TETRAHYDRATE;POTASSIUM A [Concomitant]
     Indication: Nausea
     Dates: start: 20220719, end: 20220719
  84. JONOSTERIL [CALCIUM ACETATE;MAGNESIUM ACETATE TETRAHYDRATE;POTASSIUM A [Concomitant]
     Indication: Nausea
  85. PREDNISOLONE SODIUM SUCCINATE [Concomitant]
     Active Substance: PREDNISOLONE SODIUM SUCCINATE
     Dates: start: 20220802, end: 20220802
  86. PREDNISOLONE SODIUM SUCCINATE [Concomitant]
     Active Substance: PREDNISOLONE SODIUM SUCCINATE
     Dates: start: 20220712, end: 20220712
  87. AMOXICILLIN\CLAVULANATE POTASSIUM [Concomitant]
     Active Substance: AMOXICILLIN\CLAVULANATE POTASSIUM
     Indication: Upper respiratory tract infection
     Dates: start: 20220725
  88. GRANISETRON [Concomitant]
     Active Substance: GRANISETRON
     Route: 042
     Dates: start: 20220427, end: 20220427
  89. GRANISETRON [Concomitant]
     Active Substance: GRANISETRON
     Dates: start: 20220518, end: 20220518
  90. GRANISETRON [Concomitant]
     Active Substance: GRANISETRON
     Dates: start: 20220621, end: 20220621
  91. GRANISETRON [Concomitant]
     Active Substance: GRANISETRON
     Dates: start: 20220427, end: 20220427
  92. GRANISETRON [Concomitant]
     Active Substance: GRANISETRON
     Dates: start: 20220802, end: 20220802
  93. GRANISETRON [Concomitant]
     Active Substance: GRANISETRON
     Dates: start: 20220712, end: 20220712
  94. ZOFRAN [Concomitant]
     Active Substance: ONDANSETRON HYDROCHLORIDE
     Indication: Vomiting
     Dates: start: 20220427, end: 20220428
  95. ZOFRAN [Concomitant]
     Active Substance: ONDANSETRON HYDROCHLORIDE
     Dates: start: 20220608, end: 20220608
  96. METOCLOPRAMIDE HYDROCHLORIDE [Concomitant]
     Active Substance: METOCLOPRAMIDE HYDROCHLORIDE
     Indication: Nausea
     Dates: start: 20220608, end: 20220608
  97. METOCLOPRAMIDE HYDROCHLORIDE [Concomitant]
     Active Substance: METOCLOPRAMIDE HYDROCHLORIDE
     Dates: start: 20220525, end: 20220527
  98. LEVOTHYROXINE SODIUM [Concomitant]
     Active Substance: LEVOTHYROXINE SODIUM
     Indication: Hypothyroidism
  99. DIMENHYDRINATE [Concomitant]
     Active Substance: DIMENHYDRINATE
     Indication: Nausea
     Dates: start: 20220725, end: 20220802
  100. DIMENHYDRINATE [Concomitant]
     Active Substance: DIMENHYDRINATE
     Indication: Vomiting
     Dates: start: 20220719, end: 20220719
  101. DIMENHYDRINATE [Concomitant]
     Active Substance: DIMENHYDRINATE
     Dates: start: 20220428, end: 20220429
  102. DIMENHYDRINATE [Concomitant]
     Active Substance: DIMENHYDRINATE
     Dates: start: 20220525, end: 20220526
  103. DIMENHYDRINATE [Concomitant]
     Active Substance: DIMENHYDRINATE
     Dates: start: 20220608, end: 20220608
  104. URSODIOL [Concomitant]
     Active Substance: URSODIOL
     Indication: Liver disorder
     Dates: start: 20220609, end: 20220613

REACTIONS (3)
  - Nausea [Recovered/Resolved]
  - Decreased appetite [Recovered/Resolved]
  - Liver disorder [Recovered/Resolved]

NARRATIVE: CASE EVENT DATE: 20220524
